FAERS Safety Report 10498352 (Version 2)
Quarter: 2014Q4

REPORT INFORMATION
  Report Type: Report from Study
  Country: CA (occurrence: CA)
  Receive Date: 20141006
  Receipt Date: 20141006
  Transmission Date: 20150528
  Serious: Yes (Death)
  Sender: FDA-Public Use
  Company Number: PHHY2014CA118543

PATIENT
  Age: 79 Year
  Sex: Female

DRUGS (1)
  1. ZOMETA [Suspect]
     Active Substance: ZOLEDRONIC ACID
     Indication: BREAST CANCER
     Dosage: 3 MG, EVERY 4 WEEKS
     Route: 042
     Dates: start: 20140618, end: 20140819

REACTIONS (2)
  - Blood calcium decreased [Unknown]
  - Death [Fatal]

NARRATIVE: CASE EVENT DATE: 20141001
